FAERS Safety Report 6418804-2 (Version None)
Quarter: 2009Q4

REPORT INFORMATION
  Report Type: 
  Country: None (occurrence: None)
  Receive Date: 20091026
  Receipt Date: 20091014
  Transmission Date: 20100525
  Serious: Yes (Hospitalization)
  Sender: FDA-Public Use
  Company Number: SPV1-2009-02038

PATIENT
  Age: 14 Year
  Sex: Male

DRUGS (3)
  1. VYVANSE [Suspect]
     Indication: ATTENTION DEFICIT/HYPERACTIVITY DISORDER
     Dosage: ONE DOSE, ORAL, 70 MG, 1X/DAY:QD, ORAL
     Route: 048
     Dates: start: 20090101
  2. CLONIDINE [Concomitant]
  3. TOPAMAX [Concomitant]

REACTIONS (4)
  - AGGRESSION [None]
  - DRUG EFFECT DECREASED [None]
  - HEAD BANGING [None]
  - OFF LABEL USE [None]
